FAERS Safety Report 14969420 (Version 1)
Quarter: 2018Q2

REPORT INFORMATION
  Report Type: Spontaneous
  Country: US (occurrence: US)
  Receive Date: 20180604
  Receipt Date: 20180604
  Transmission Date: 20180711
  Serious: Yes (Death, Other)
  Sender: FDA-Public Use
  Company Number: US-SHIRE-US201820534

PATIENT
  Age: 16 Year
  Sex: Male

DRUGS (4)
  1. INTUNIV [Suspect]
     Active Substance: GUANFACINE HYDROCHLORIDE
     Indication: PRODUCT USED FOR UNKNOWN INDICATION
     Route: 065
  2. BUPROPION. [Concomitant]
     Active Substance: BUPROPION
     Indication: PRODUCT USED FOR UNKNOWN INDICATION
  3. HYDROXYZINE [Concomitant]
     Active Substance: HYDROXYZINE HYDROCHLORIDE
     Indication: PRODUCT USED FOR UNKNOWN INDICATION
  4. LAMOTRIGINE. [Concomitant]
     Active Substance: LAMOTRIGINE
     Indication: PRODUCT USED FOR UNKNOWN INDICATION

REACTIONS (13)
  - Anion gap [Unknown]
  - Electrocardiogram QRS complex prolonged [Unknown]
  - Paralysis [Unknown]
  - Paraesthesia [Unknown]
  - Hallucination [Unknown]
  - Hypotension [Unknown]
  - Tachycardia [Unknown]
  - Coma [Fatal]
  - Respiratory depression [Unknown]
  - Arrhythmia [Unknown]
  - Agitation [Unknown]
  - Delirium [Unknown]
  - Gastrointestinal haemorrhage [Unknown]
